FAERS Safety Report 11378852 (Version 2)
Quarter: 2015Q3

REPORT INFORMATION
  Report Type: Spontaneous
  Country: US (occurrence: US)
  Receive Date: 20150811
  Receipt Date: 20150903
  Transmission Date: 20151125
  Serious: No
  Sender: FDA-Public Use
  Company Number: US-ELI_LILLY_AND_COMPANY-US200908001287

PATIENT
  Sex: Female

DRUGS (15)
  1. BYETTA [Concomitant]
     Active Substance: EXENATIDE
  2. HUMULIN N [Suspect]
     Active Substance: INSULIN HUMAN
  3. AVAPRO [Concomitant]
     Active Substance: IRBESARTAN
  4. SPIRIVA [Concomitant]
     Active Substance: TIOTROPIUM BROMIDE MONOHYDRATE
  5. FEMARA [Concomitant]
     Active Substance: LETROZOLE
  6. CIMETIDINE [Concomitant]
     Active Substance: CIMETIDINE
  7. ALBUTEROL. [Concomitant]
     Active Substance: ALBUTEROL
  8. CRESTOR [Concomitant]
     Active Substance: ROSUVASTATIN CALCIUM
  9. ADVAIR HFA [Concomitant]
     Active Substance: FLUTICASONE PROPIONATE\SALMETEROL XINAFOATE
  10. PLAVIX [Concomitant]
     Active Substance: CLOPIDOGREL BISULFATE
  11. KLOR-CON [Concomitant]
     Active Substance: POTASSIUM CHLORIDE
  12. HUMALOG [Suspect]
     Active Substance: INSULIN LISPRO
  13. SYNTHROID [Concomitant]
     Active Substance: LEVOTHYROXINE SODIUM
  14. LASIX [Concomitant]
     Active Substance: FUROSEMIDE
  15. COREG [Concomitant]
     Active Substance: CARVEDILOL

REACTIONS (4)
  - Anxiety [Unknown]
  - Eye disorder [Not Recovered/Not Resolved]
  - Visual acuity reduced [Not Recovered/Not Resolved]
  - Nausea [Unknown]

NARRATIVE: CASE EVENT DATE: 200903
